FAERS Safety Report 8723954 (Version 2)
Quarter: 2012Q4

REPORT INFORMATION
  Report Type: 
  Country: US (occurrence: US)
  Receive Date: 20120815
  Receipt Date: 20121024
  Transmission Date: 20130627
  Serious: Yes (Hospitalization)
  Sender: FDA-Public Use
  Company Number: US-BAYER-2012-080311

PATIENT
  Age: 36 Year
  Sex: Female
  Weight: 115.65 kg

DRUGS (14)
  1. YAZ [Suspect]
     Indication: CONTRACEPTION
     Dosage: UNK
     Dates: end: 2006
  2. GIANVI [Suspect]
     Indication: CONTRACEPTION
     Dosage: UNK
     Dates: start: 2006, end: 201203
  3. GIANVI [Suspect]
     Indication: CONTRACEPTION
     Dosage: UNK
     Dates: start: 2006, end: 20120322
  4. YASMIN [Suspect]
     Dosage: UNK
     Dates: start: 2003
  5. TYLENOL [Concomitant]
     Dosage: UNK
     Dates: start: 201203
  6. IBUPROFEN [Concomitant]
     Dosage: UNK
     Dates: start: 201203
  7. ALLEGRA [Concomitant]
     Indication: MULTIPLE ALLERGIES
     Dosage: 180 mg, daily
     Dates: start: 201203
  8. ZYRTEC [Concomitant]
     Indication: MULTIPLE ALLERGIES
     Dosage: UNK
     Dates: start: 2009
  9. LEVAQUIN [Concomitant]
     Indication: BRONCHITIS
     Dosage: 500 mg, daily
     Dates: start: 20120319, end: 20120321
  10. MUCINEX [Concomitant]
     Dosage: UNK
  11. ALBUTEROL [Concomitant]
  12. NASACORT [Concomitant]
  13. METOPROLOL [Concomitant]
     Indication: HYPERTENSION
  14. LEVOFLOXACIN [Concomitant]

REACTIONS (3)
  - Deep vein thrombosis [None]
  - Pulmonary embolism [None]
  - Injury [None]
